FAERS Safety Report 6771722-2 (Version None)
Quarter: 2010Q2

REPORT INFORMATION
  Report Type: 
  Country: None (occurrence: None)
  Receive Date: 20100616
  Receipt Date: 20090915
  Transmission Date: 20101027
  Serious: No
  Sender: FDA-Public Use
  Company Number: US-ASTRAZENECA-2009SE13196

PATIENT
  Age: 742 Month
  Sex: Female
  Weight: 122.5 kg

DRUGS (2)
  1. ATACAND [Suspect]
     Indication: HYPERTENSION
     Route: 048
     Dates: start: 20090825
  2. FUROSEMIDE [Concomitant]

REACTIONS (2)
  - INSOMNIA [None]
  - OEDEMA PERIPHERAL [None]
